FAERS Safety Report 5047944-8 (Version None)
Quarter: 2006Q2

REPORT INFORMATION
  Report Type: 
  Country: None (occurrence: None)
  Receive Date: 20060601
  Receipt Date: 20060322
  Transmission Date: 20061013
  Serious: No
  Sender: FDA-Public Use
  Company Number: 2006PV010839

PATIENT
  Age: 64 Year
  Sex: Male

DRUGS (7)
  1. BYETTA [Suspect]
     Indication: DRUG USE FOR UNKNOWN INDICATION
     Dosage: SEE IMAGE, SC
     Route: 058
     Dates: start: 20060101, end: 20060320
  2. GLUCOPHAGE [Concomitant]
  3. AMARYL [Concomitant]
  4. TARKA [Concomitant]
  5. ACTOS [Concomitant]
  6. STARLIX [Concomitant]
  7. NOVOLOG MIX 70/30 [Concomitant]

REACTIONS (1)
  - RASH [None]
